FAERS Safety Report 9893601 (Version 2)
Quarter: 2014Q2

REPORT INFORMATION
  Report Type: Spontaneous
  Country: US (occurrence: US)
  Receive Date: 20140213
  Receipt Date: 20140513
  Transmission Date: 20141212
  Serious: Yes (Other)
  Sender: FDA-Public Use
  Company Number: US-TEVA-461623USA

PATIENT
  Sex: Female
  Weight: 72.64 kg

DRUGS (5)
  1. ACTIQ [Suspect]
     Indication: PAIN
     Route: 048
     Dates: start: 2010
  2. NORCO [Concomitant]
  3. FENTANYL [Concomitant]
     Route: 062
  4. MUSCLE RELAXANTS [Concomitant]
     Indication: MUSCLE SPASMS
  5. CHEMOTHERAPEUTICS NOS [Concomitant]

REACTIONS (2)
  - Cancer pain [Unknown]
  - Pain [Not Recovered/Not Resolved]
